FAERS Safety Report 18068197 (Version 2)
Quarter: 2020Q3

REPORT INFORMATION
  Report Type: Spontaneous
  Country: US (occurrence: US)
  Receive Date: 20200724
  Receipt Date: 20200728
  Transmission Date: 20201103
  Serious: Yes (Hospitalization, Other)
  Sender: FDA-Public Use
  Company Number: US-PURDUE-USA-2020-0159465

PATIENT
  Age: 57 Year
  Sex: Male

DRUGS (3)
  1. TRAMADOL. [Suspect]
     Active Substance: TRAMADOL
     Indication: PRODUCT USED FOR UNKNOWN INDICATION
     Dosage: UNKNOWN
     Route: 048
  2. OXYCONTIN [Suspect]
     Active Substance: OXYCODONE HYDROCHLORIDE
     Indication: PAIN IN EXTREMITY
     Dosage: UNKNOWN
     Route: 048
  3. BUPRENORPHINE TRANSDERMAL PATCH (SIMILAR TO NDA 21?306) [Suspect]
     Active Substance: BUPRENORPHINE
     Indication: PRODUCT USED FOR UNKNOWN INDICATION
     Dosage: UNKNOWN
     Route: 062

REACTIONS (10)
  - Cardiac disorder [Unknown]
  - Cerebrovascular accident [Unknown]
  - Overdose [Unknown]
  - Impaired work ability [Unknown]
  - Anosognosia [Unknown]
  - Judgement impaired [Unknown]
  - Drug dependence [Unknown]
  - Ischaemic stroke [Unknown]
  - Cognitive disorder [Unknown]
  - Visuospatial deficit [Unknown]

NARRATIVE: CASE EVENT DATE: 20170601
